FAERS Safety Report 13736993 (Version 1)
Quarter: 2017Q3

REPORT INFORMATION
  Report Type: Spontaneous
  Country: US (occurrence: US)
  Receive Date: 20170710
  Receipt Date: 20170710
  Transmission Date: 20171127
  Serious: No
  Sender: FDA-Public Use
  Company Number: US-BAYER-2017-130304

PATIENT
  Sex: Female

DRUGS (3)
  1. PALBOCICLIB [Concomitant]
     Active Substance: PALBOCICLIB
     Dosage: UNK
     Dates: start: 20170528
  2. MIRALAX [Suspect]
     Active Substance: POLYETHYLENE GLYCOL 3350
     Dosage: UNK
  3. DULCOLAX (DOCUSATE SODIUM) [Concomitant]
     Active Substance: DOCUSATE SODIUM
     Dosage: UNK

REACTIONS (3)
  - Constipation [Not Recovered/Not Resolved]
  - Bowel movement irregularity [Unknown]
  - Diarrhoea [Not Recovered/Not Resolved]
